FAERS Safety Report 7996092-3 (Version None)
Quarter: 2011Q4

REPORT INFORMATION
  Report Type: 
  Country: None (occurrence: None)
  Receive Date: 20111220
  Receipt Date: 20111212
  Transmission Date: 20120403
  Serious: Yes (Other)
  Sender: FDA-Public Use
  Company Number: PHEH2011US011624

PATIENT
  Sex: Female

DRUGS (1)
  1. ZOMETA [Suspect]
     Indication: BREAST DISORDER
     Dosage: UNK UKN, UNK
     Route: 042
     Dates: start: 20011201, end: 20111116

REACTIONS (3)
  - OSTEONECROSIS OF JAW [None]
  - IMPAIRED HEALING [None]
  - DYSGEUSIA [None]
